FAERS Safety Report 5387232-3 (Version None)
Quarter: 2007Q3

REPORT INFORMATION
  Report Type: 
  Country: None (occurrence: None)
  Receive Date: 20070716
  Receipt Date: 20070703
  Transmission Date: 20080115
  Serious: Yes (Hospitalization)
  Sender: FDA-Public Use
  Company Number: PHBS2007JP11004

PATIENT
  Age: 7 Year
  Sex: Female

DRUGS (2)
  1. CYCLOSPORINE [Suspect]
     Indication: NEPHROTIC SYNDROME
     Route: 048
  2. STEROIDS NOS [Suspect]
     Indication: NEPHROTIC SYNDROME
     Route: 065

REACTIONS (9)
  - ANTITHROMBIN III DECREASED [None]
  - CEREBRAL INFARCTION [None]
  - HYPERCOAGULATION [None]
  - HYPOALBUMINAEMIA [None]
  - MUSCULAR WEAKNESS [None]
  - NEPHROPATHY TOXIC [None]
  - NEPHROTIC SYNDROME [None]
  - PROTEINURIA [None]
  - SPEECH DISORDER [None]
